FAERS Safety Report 9490549 (Version 1)
Quarter: 2013Q3

REPORT INFORMATION
  Report Type: Spontaneous
  Country: US (occurrence: None)
  Receive Date: 20130827
  Receipt Date: 20130827
  Transmission Date: 20140515
  Serious: Yes (Disabling)
  Sender: FDA-Public Use
  Company Number: None

PATIENT
  Age: 64 Year
  Sex: Female
  Weight: 56.7 kg

DRUGS (23)
  1. LYRICA [Suspect]
     Indication: ORAL SURGERY
     Dosage: 1 CAPSULE  2 TIMES DAILY  BY MOUTH
     Route: 048
     Dates: start: 20130620, end: 20130621
  2. PROTONIX [Concomitant]
  3. AMITIZA [Concomitant]
  4. IMDUR [Concomitant]
  5. JANUVIA [Concomitant]
  6. TOPROL [Concomitant]
  7. NAPROXEN [Concomitant]
  8. DIOVAN [Concomitant]
  9. CRESTOR [Concomitant]
  10. ZETIA [Concomitant]
  11. ZANTAC [Concomitant]
  12. FLEXERAL [Concomitant]
  13. VICODEN [Concomitant]
  14. GLIMEPIRIDE [Concomitant]
  15. BENADRYL [Concomitant]
  16. STOOL SOFTNER [Concomitant]
  17. BABY ASPIRIN [Concomitant]
  18. CITRACEL [Concomitant]
  19. VITAMINE E [Concomitant]
  20. MULTI VITAMIN [Concomitant]
  21. MIRALAX [Concomitant]
  22. PROBIOTIC [Concomitant]
  23. BIOTEN [Concomitant]

REACTIONS (3)
  - Dizziness [None]
  - Heart rate increased [None]
  - Blood pressure increased [None]
